FAERS Safety Report 19157572 (Version 3)
Quarter: 2023Q1

REPORT INFORMATION
  Report Type: Spontaneous
  Country: GB (occurrence: GB)
  Receive Date: 20210420
  Receipt Date: 20230216
  Transmission Date: 20230417
  Serious: Yes (Hospitalization, Disabling, Other)
  Sender: FDA-Public Use
  Company Number: None

PATIENT
  Age: 35 Year
  Sex: Male
  Weight: 54.88 kg

DRUGS (2)
  1. CIPROFLOXACIN [Suspect]
     Active Substance: CIPROFLOXACIN
     Indication: Ill-defined disorder
     Dosage: 500 MG, BID
     Route: 048
     Dates: start: 20210329, end: 20210331
  2. OFLOXACIN [Suspect]
     Active Substance: OFLOXACIN
     Indication: Ill-defined disorder
     Dosage: 400 MG, QD
     Route: 048
     Dates: start: 20210310, end: 20210325

REACTIONS (27)
  - Dyspnoea [Unknown]
  - Anxiety [Not Recovered/Not Resolved]
  - Paraesthesia [Not Recovered/Not Resolved]
  - Vision blurred [Unknown]
  - Tinnitus [Not Recovered/Not Resolved]
  - Abdominal pain [Not Recovered/Not Resolved]
  - Tremor [Unknown]
  - Insomnia [Not Recovered/Not Resolved]
  - Confusional state [Not Recovered/Not Resolved]
  - Fatigue [Not Recovered/Not Resolved]
  - Tendon pain [Unknown]
  - Urinary incontinence [Not Recovered/Not Resolved]
  - Incontinence [Not Recovered/Not Resolved]
  - Bladder irritation [Not Recovered/Not Resolved]
  - Medication error [Unknown]
  - Genital discomfort [Not Recovered/Not Resolved]
  - Penile discomfort [Not Recovered/Not Resolved]
  - Renal pain [Not Recovered/Not Resolved]
  - Back pain [Not Recovered/Not Resolved]
  - Neck pain [Not Recovered/Not Resolved]
  - Penile pain [Not Recovered/Not Resolved]
  - Genital pain [Not Recovered/Not Resolved]
  - Memory impairment [Not Recovered/Not Resolved]
  - Abnormal loss of weight [Not Recovered/Not Resolved]
  - Asthenia [Unknown]
  - Bladder pain [Not Recovered/Not Resolved]
  - Feeling abnormal [Not Recovered/Not Resolved]

NARRATIVE: CASE EVENT DATE: 20210313
